FAERS Safety Report 9895159 (Version 1)
Quarter: 2014Q1

REPORT INFORMATION
  Report Type: Spontaneous
  Country: US (occurrence: US)
  Receive Date: 20140213
  Receipt Date: 20140213
  Transmission Date: 20141002
  Serious: No
  Sender: FDA-Public Use
  Company Number: US-BRISTOL-MYERS SQUIBB COMPANY-18920819

PATIENT
  Age: 71 Year
  Sex: Female
  Weight: 78.46 kg

DRUGS (2)
  1. ABATACEPT SUBQ INJECTION 125MG/ML [Suspect]
     Indication: RHEUMATOID ARTHRITIS
     Dosage: NEXT DOSE:21MAY2013. 1DF:125MG/ML
     Route: 058
     Dates: start: 20130514
  2. PREDNISONE [Concomitant]

REACTIONS (2)
  - Drug ineffective [Unknown]
  - Injection site bruising [Not Recovered/Not Resolved]
